FAERS Safety Report 7420460-1 (Version None)
Quarter: 2011Q2

REPORT INFORMATION
  Report Type: 
  Country: None (occurrence: None)
  Receive Date: 20110418
  Receipt Date: 20110413
  Transmission Date: 20111010
  Serious: No
  Sender: FDA-Public Use
  Company Number: US-PFIZER INC-2011081643

PATIENT
  Sex: Female

DRUGS (2)
  1. ADVIL LIQUI-GELS [Suspect]
     Indication: ARTHRALGIA
     Dosage: 200 MG, AS NEEDED
     Route: 048
  2. CALCIUM [Concomitant]
     Indication: MINERAL SUPPLEMENTATION
     Dosage: 600 MG, AS NEEDED
     Route: 048

REACTIONS (1)
  - ARTHRALGIA [None]
